FAERS Safety Report 13758507 (Version 1)
Quarter: 2017Q3

REPORT INFORMATION
  Report Type: Report from Study
  Country: US (occurrence: US)
  Receive Date: 20170717
  Receipt Date: 20170717
  Transmission Date: 20171127
  Serious: No
  Sender: FDA-Public Use
  Company Number: US-ALEXION PHARMACEUTICALS INC.-A201707861

PATIENT
  Sex: Male

DRUGS (1)
  1. SOLIRIS [Suspect]
     Active Substance: ECULIZUMAB
     Indication: PAROXYSMAL NOCTURNAL HAEMOGLOBINURIA
     Dosage: 900 MG, EVERY 5 WEEKS
     Route: 042
     Dates: end: 20170614

REACTIONS (3)
  - Blood lactate dehydrogenase abnormal [Unknown]
  - Inappropriate schedule of drug administration [Unknown]
  - Laboratory test abnormal [Unknown]
